FAERS Safety Report 10215240 (Version 1)
Quarter: 2014Q2

REPORT INFORMATION
  Report Type: Spontaneous
  Country: FR (occurrence: FR)
  Receive Date: 20140603
  Receipt Date: 20140603
  Transmission Date: 20141212
  Serious: Yes (Hospitalization)
  Sender: FDA-Public Use
  Company Number: PHHY2014FR066628

PATIENT
  Sex: Male

DRUGS (2)
  1. TEGRETOL [Suspect]
     Dosage: UNK UKN, UNK
  2. SERTRALINA MYLAN [Suspect]
     Dosage: UNK UKN, UNK

REACTIONS (5)
  - Epidermolysis bullosa [Recovering/Resolving]
  - Cardiac failure [Recovering/Resolving]
  - Erythema [Recovering/Resolving]
  - Renal failure [Recovering/Resolving]
  - Medication error [Recovering/Resolving]
